FAERS Safety Report 9849910 (Version 3)
Quarter: 2014Q2

REPORT INFORMATION
  Report Type: Spontaneous
  Country: IT (occurrence: IT)
  Receive Date: 20140128
  Receipt Date: 20140416
  Transmission Date: 20141212
  Serious: Yes (Hospitalization)
  Sender: FDA-Public Use
  Company Number: IT-MYLANLABS-113AS20130405

PATIENT
  Age: 85 Year
  Sex: Female

DRUGS (7)
  1. AMIODARONE HYDROCHLORIDE [Suspect]
     Indication: ATRIAL TACHYCARDIA
     Dosage: 1 DF DAILY
     Route: 048
     Dates: start: 20130101, end: 20131030
  2. BISOPROLOL FUMARATE [Suspect]
     Indication: HYPERTENSION
     Dosage: 2.5 MG DAILY
     Route: 048
     Dates: start: 20130101, end: 20131030
  3. COUMADIN [Concomitant]
     Indication: EMBOLISM
     Dosage: 5 MG COMPRESSE
     Route: 048
     Dates: start: 20130101, end: 20131030
  4. LASIX [Concomitant]
     Indication: PRODUCT USED FOR UNKNOWN INDICATION
     Dosage: 500 MG COMPRESSE
     Route: 048
     Dates: start: 20130101, end: 20131030
  5. EUTIROX [Concomitant]
     Indication: PRODUCT USED FOR UNKNOWN INDICATION
     Dosage: 50 MICROGRAMMI COMPRESSE
     Route: 048
     Dates: start: 20130101, end: 20131030
  6. OMEPRAZOLE [Concomitant]
     Indication: PRODUCT USED FOR UNKNOWN INDICATION
     Route: 048
     Dates: start: 20130101, end: 20131030
  7. SERTRALINE HYDROCHLORIDE [Concomitant]
     Indication: PRODUCT USED FOR UNKNOWN INDICATION
     Route: 048
     Dates: start: 20130101, end: 20131030

REACTIONS (4)
  - Renal failure acute [Unknown]
  - Oedema [Recovered/Resolved]
  - Pleural effusion [Recovered/Resolved]
  - Pain [Unknown]
